FAERS Safety Report 7352066-7 (Version None)
Quarter: 2011Q1

REPORT INFORMATION
  Report Type: 
  Country: None (occurrence: None)
  Receive Date: 20110315
  Receipt Date: 20110307
  Transmission Date: 20110831
  Serious: Yes (Hospitalization, Other)
  Sender: FDA-Public Use
  Company Number: US-ASTELLAS-2011US000691

PATIENT
  Sex: Male
  Weight: 85 kg

DRUGS (13)
  1. PROGRAF [Suspect]
     Indication: NEPHROTIC SYNDROME
     Dosage: 4 MG, BID
     Route: 048
     Dates: start: 20020101, end: 20070101
  2. ALDACTONE [Concomitant]
     Indication: OEDEMA
     Dosage: 25 MG, UID/QD
     Route: 048
  3. PROGRAF [Suspect]
     Dosage: 4 MG, BID
     Route: 048
     Dates: start: 20110201
  4. ZOFRAN [Concomitant]
     Indication: PRODUCT USED FOR UNKNOWN INDICATION
     Dosage: UNK
     Route: 065
  5. IMODIUM [Concomitant]
     Indication: PRODUCT USED FOR UNKNOWN INDICATION
     Dosage: UNK
     Route: 065
  6. COUMADIN [Concomitant]
     Indication: COAGULOPATHY
     Dosage: 2 MG, UID/QD
     Route: 048
  7. PREDNISONE [Concomitant]
     Dosage: 60 MG, BID
     Route: 065
  8. PHENERGAN [Concomitant]
     Indication: PRODUCT USED FOR UNKNOWN INDICATION
     Dosage: UNK
     Route: 065
  9. PROGRAF [Suspect]
     Indication: FOCAL SEGMENTAL GLOMERULOSCLEROSIS
     Dosage: 3 MG/DAY, BID
     Route: 048
     Dates: start: 20070101
  10. LASIX [Concomitant]
     Indication: OEDEMA
     Dosage: 20 MG, UID/QD
     Route: 048
  11. PREDNISONE [Concomitant]
     Indication: PRODUCT USED FOR UNKNOWN INDICATION
     Dosage: 20 MG, TID
     Route: 048
  12. PROGRAF [Suspect]
     Dosage: UNK
     Route: 048
  13. LASIX [Concomitant]
     Dosage: 60 MG, BID
     Route: 065

REACTIONS (11)
  - DIABETES MELLITUS [None]
  - HYPERLIPIDAEMIA [None]
  - HYPERCOAGULATION [None]
  - TREATMENT NONCOMPLIANCE [None]
  - BLOOD SODIUM DECREASED [None]
  - ELECTROLYTE IMBALANCE [None]
  - OFF LABEL USE [None]
  - NEPHROTIC SYNDROME [None]
  - HYPOALBUMINAEMIA [None]
  - LEUKOCYTOSIS [None]
  - ATELECTASIS [None]
